FAERS Safety Report 19224692 (Version 1)
Quarter: 2021Q2

REPORT INFORMATION
  Report Type: Spontaneous
  Country: US (occurrence: US)
  Receive Date: 20210505
  Receipt Date: 20210505
  Transmission Date: 20210717
  Serious: No
  Sender: FDA-Public Use
  Company Number: US-ROCHE-2648505

PATIENT
  Age: 76 Year
  Sex: Male

DRUGS (3)
  1. ESBRIET [Suspect]
     Active Substance: PIRFENIDONE
     Indication: IDIOPATHIC PULMONARY FIBROSIS
     Route: 048
     Dates: start: 20200708, end: 20200714
  2. ESBRIET [Suspect]
     Active Substance: PIRFENIDONE
     Dosage: 2 TABLETS OF (267 MG) EACH THREE TIMES A DAY
     Route: 048
     Dates: start: 20200715
  3. ESBRIET [Suspect]
     Active Substance: PIRFENIDONE
     Dosage: 3 TABLETS OF (267 MG) EACH THREE TIMES A DAY
     Route: 048
     Dates: start: 20200722

REACTIONS (4)
  - Liver function test increased [Unknown]
  - Fatigue [Recovered/Resolved]
  - Stomatitis [Recovering/Resolving]
  - Sleep disorder [Recovered/Resolved]

NARRATIVE: CASE EVENT DATE: 20200708
